FAERS Safety Report 21664985 (Version 1)
Quarter: 2022Q4

REPORT INFORMATION
  Report Type: Spontaneous
  Country: IT (occurrence: IT)
  Receive Date: 20221130
  Receipt Date: 20221130
  Transmission Date: 20230112
  Serious: Yes (Congenital Anomaly)
  Sender: FDA-Public Use
  Company Number: None

PATIENT
  Age: 1 Day
  Sex: Male
  Weight: 2 kg

DRUGS (1)
  1. TYSABRI [Suspect]
     Active Substance: NATALIZUMAB
     Indication: Relapsing-remitting multiple sclerosis
     Dosage: EVERY 4-5 WEEKS
     Route: 050
     Dates: start: 20210315, end: 20220914

REACTIONS (1)
  - Pulmonary valve stenosis [Unknown]

NARRATIVE: CASE EVENT DATE: 20221106
